FAERS Safety Report 7057322-8 (Version None)
Quarter: 2010Q4

REPORT INFORMATION
  Report Type: 
  Country: None (occurrence: None)
  Receive Date: 20101022
  Receipt Date: 20101014
  Transmission Date: 20110411
  Serious: Yes (Disabling)
  Sender: FDA-Public Use
  Company Number: FR-BRISTOL-MYERS SQUIBB COMPANY-15344740

PATIENT
  Age: 53 Year
  Sex: Male
  Weight: 53 kg

DRUGS (4)
  1. CETUXIMAB [Suspect]
     Indication: HEAD AND NECK CANCER
     Dosage: LAST DOSE ON 11OCT2010.NO OF INFUSION:20
     Route: 042
     Dates: start: 20100413
  2. CISPLATIN [Suspect]
     Indication: HEAD AND NECK CANCER
     Dosage: LAST DOSE ON 03AUG2010
     Route: 042
     Dates: start: 20100413
  3. CILENGITIDE [Suspect]
     Indication: HEAD AND NECK CANCER
     Dosage: LAST DOSE ON 11OCT2010.NO OF INFUSION:33
     Route: 042
     Dates: start: 20100413
  4. FLUOROURACIL [Suspect]
     Indication: HEAD AND NECK CANCER
     Dosage: CONTINOUS INFUSION FROM DAY 1 TO 4 OF CYCLE.LAST DOSE ON 04AUG2010
     Route: 042
     Dates: start: 20100414

REACTIONS (1)
  - BLOOD AMYLASE INCREASED [None]
